FAERS Safety Report 8670052 (Version 4)
Quarter: 2014Q1

REPORT INFORMATION
  Report Type: Report from Study
  Country: JP (occurrence: JP)
  Receive Date: 20120718
  Receipt Date: 20140131
  Transmission Date: 20141002
  Serious: Yes (Other)
  Sender: FDA-Public Use
  Company Number: JP-009507513-1207JPN005096

PATIENT
  Age: 42 Year
  Sex: Female
  Weight: 55 kg

DRUGS (19)
  1. JANUVIA TABLETS 50MG [Suspect]
     Indication: TYPE 2 DIABETES MELLITUS
     Dosage: 50 MG, QD
     Route: 048
     Dates: start: 20111123
  2. LANTUS [Concomitant]
     Indication: TYPE 2 DIABETES MELLITUS
     Dosage: 14 (UNDER1000UNIT), QD
     Route: 058
     Dates: start: 20111114, end: 20111122
  3. RINDERON VG [Concomitant]
     Indication: PUSTULAR PSORIASIS
     Dosage: DAILY DOSE UNKNOWN, BID
     Route: 061
     Dates: start: 20111108
  4. ALLELOCK [Concomitant]
     Indication: PUSTULAR PSORIASIS
     Dosage: 20 MG, DIVIDED DOSE FREQUENCY UNKNOWN
     Route: 048
     Dates: start: 20111227
  5. BIOTIN [Concomitant]
     Indication: PUSTULAR PSORIASIS
     Dosage: 0.3 G, TID
     Route: 048
     Dates: start: 20111227
  6. KERATINAMIN [Concomitant]
     Indication: PUSTULAR PSORIASIS
     Dosage: UNK, BID
     Route: 061
     Dates: start: 20111227
  7. METGLUCO [Concomitant]
     Indication: TYPE 2 DIABETES MELLITUS
     Dosage: 250 MG, BID
     Route: 048
     Dates: start: 20111114, end: 20120130
  8. METGLUCO [Concomitant]
     Dosage: 250 MG, QID
     Route: 048
     Dates: start: 20120131, end: 20121129
  9. METGLUCO [Concomitant]
     Dosage: 750 MG, BID
     Route: 048
     Dates: start: 20121130, end: 20130912
  10. METGLUCO [Concomitant]
     Dosage: 750 MG, TID
     Route: 048
     Dates: start: 20130913, end: 20131107
  11. METGLUCO [Concomitant]
     Dosage: 1 G, BID
     Route: 048
     Dates: start: 20131108
  12. AMARYL [Concomitant]
     Indication: TYPE 2 DIABETES MELLITUS
     Dosage: 1 MG, QD
     Route: 048
     Dates: start: 20120417, end: 20120830
  13. AMARYL [Concomitant]
     Dosage: 1 MG, BID
     Route: 048
     Dates: start: 20120831
  14. TAKEPRON [Concomitant]
     Indication: GASTROOESOPHAGEAL REFLUX DISEASE
     Dosage: 15 MG, QD
     Route: 048
     Dates: start: 20120830
  15. PURSENNID (SENNOSIDES) [Concomitant]
     Indication: CONSTIPATION
     Dosage: 12 MG, QD
     Route: 048
     Dates: start: 20120830
  16. MAGMITT [Concomitant]
     Indication: CONSTIPATION
     Dosage: 500 MG, BID
     Route: 048
     Dates: start: 20120830, end: 20130228
  17. PIOGLITAZONE HYDROCHLORIDE [Concomitant]
     Indication: DIABETES MELLITUS
     Dosage: 15 MG, QD
     Route: 048
     Dates: start: 20140116
  18. MEDICON (DEXTROMETHORPHAN HYDROBROMIDE) [Concomitant]
     Indication: UPPER RESPIRATORY TRACT INFLAMMATION
     Dosage: 30 MG, TID
     Route: 048
     Dates: start: 20140116, end: 20140120
  19. MUCOSOLVAN [Concomitant]
     Indication: UPPER RESPIRATORY TRACT INFLAMMATION
     Dosage: 15 MG, TID
     Route: 048
     Dates: start: 20140116, end: 20140120

REACTIONS (10)
  - Tonsillitis [Recovered/Resolved]
  - Upper respiratory tract inflammation [Recovered/Resolved]
  - Cervix carcinoma [Recovering/Resolving]
  - Gastrooesophageal reflux disease [Recovering/Resolving]
  - Upper respiratory tract inflammation [Recovered/Resolved]
  - Diabetes mellitus [Recovering/Resolving]
  - Diabetes mellitus [Recovering/Resolving]
  - Constipation [Recovering/Resolving]
  - Nasopharyngitis [Recovered/Resolved]
  - Diabetes mellitus [Unknown]
